FAERS Safety Report 8379791-3 (Version None)
Quarter: 2012Q1

REPORT INFORMATION
  Report Type: 
  Country: None (occurrence: None)
  Receive Date: 20120323
  Receipt Date: 20110425
  Transmission Date: 20120608
  Serious: Yes (Other)
  Sender: FDA-Public Use
  Company Number: 163-21880-11040335

PATIENT
  Age: 56 Year
  Sex: Female

DRUGS (8)
  1. VELCADE [Concomitant]
  2. VALTREX [Concomitant]
  3. DECADRON [Concomitant]
  4. OXYCODONE HCL [Concomitant]
  5. REVLIMID [Suspect]
     Indication: MULTIPLE MYELOMA
     Dosage: 15 MG, QOD FOR 21 DAYS THEN 7 DAYS OFF, PO
     Route: 048
     Dates: start: 20110224
  6. REVLIMID [Suspect]
     Indication: MULTIPLE MYELOMA
     Dosage: 15 MG, QOD FOR 21 DAYS THEN 7 DAYS OFF, PO
     Route: 048
     Dates: start: 20110301
  7. ZOFRAN [Concomitant]
  8. IMODIUM (LOPERAMINE HYDROCHLORIDE) [Concomitant]

REACTIONS (1)
  - URTICARIA [None]
